FAERS Safety Report 9202717 (Version 1)
Quarter: 2013Q2

REPORT INFORMATION
  Report Type: Spontaneous
  Country: GB (occurrence: GB)
  Receive Date: 20130401
  Receipt Date: 20130401
  Transmission Date: 20140414
  Serious: Yes (Hospitalization)
  Sender: FDA-Public Use
  Company Number: GB-PFIZER INC-GBWYE583316FEB04

PATIENT
  Sex: Female

DRUGS (2)
  1. IBUPROFEN [Suspect]
     Indication: TENDONITIS
     Dosage: 400 MG, 4X/DAY
     Route: 048
  2. LITHIUM [Interacting]
     Indication: BIPOLAR DISORDER
     Dosage: UNKNOWN
     Route: 048

REACTIONS (7)
  - Drug interaction [Recovered/Resolved]
  - Renal failure [Recovered/Resolved]
  - Stupor [Recovered/Resolved]
  - Confusional state [Recovered/Resolved]
  - Ataxia [Recovered/Resolved]
  - Plasma cell myeloma [Unknown]
  - Pathological fracture [Unknown]
